FAERS Safety Report 10053528 (Version 1)
Quarter: 2014Q2

REPORT INFORMATION
  Report Type: Spontaneous
  Country: US (occurrence: US)
  Receive Date: 20140402
  Receipt Date: 20140402
  Transmission Date: 20141212
  Serious: No
  Sender: FDA-Public Use
  Company Number: US-PFIZER INC-2014090697

PATIENT
  Sex: 0

DRUGS (2)
  1. XANAX [Suspect]
     Indication: SPINAL CORD INJURY
     Dosage: UNK
  2. ZOLOFT [Concomitant]
     Dosage: UNK

REACTIONS (2)
  - Muscle spasms [Unknown]
  - Off label use [Unknown]
